FAERS Safety Report 9672022 (Version 1)
Quarter: 2013Q4

REPORT INFORMATION
  Report Type: Spontaneous
  Country: US (occurrence: None)
  Receive Date: 20131105
  Receipt Date: 20131105
  Transmission Date: 20140711
  Serious: Yes (Disabling)
  Sender: FDA-Public Use
  Company Number: None

PATIENT
  Sex: Female
  Weight: 68.04 kg

DRUGS (8)
  1. ALBUTEROL [Suspect]
     Indication: BRONCHITIS
     Dosage: 0.083%  ONE VIAL  TWICE DAILY  NEBULIZER
     Dates: start: 20131025, end: 20131101
  2. ALBUTEROL INHALER [Concomitant]
  3. SIMBICORT [Concomitant]
  4. WARFRIN [Concomitant]
  5. ANAGRILIDE [Concomitant]
  6. HYDROXUREA [Concomitant]
  7. IRON [Concomitant]
  8. FOLIC ACID [Concomitant]

REACTIONS (7)
  - Bronchitis [None]
  - Sensation of heaviness [None]
  - Chest pain [None]
  - Productive cough [None]
  - Dysphonia [None]
  - Oropharyngeal pain [None]
  - Poor quality drug administered [None]
